FAERS Safety Report 11094564 (Version 3)
Quarter: 2015Q2

REPORT INFORMATION
  Report Type: Report from Study
  Country: HU (occurrence: HU)
  Receive Date: 20150506
  Receipt Date: 20150522
  Transmission Date: 20150821
  Serious: Yes (Death, Life-Threatening)
  Sender: FDA-Public Use
  Company Number: HU-ABBVIE-15P-076-1386115-00

PATIENT
  Age: 78 Year
  Sex: Male

DRUGS (7)
  1. CITAPRAM [Concomitant]
     Indication: AFFECTIVE DISORDER
     Route: 048
     Dates: start: 20150215
  2. STALEVO [Concomitant]
     Active Substance: CARBIDOPA\ENTACAPONE\LEVODOPA
     Indication: PARKINSON^S DISEASE
     Dosage: 150MG/37.5MG/200MG AT 9PM, 1AM, 4AM
     Route: 048
  3. TANYDON [Concomitant]
     Indication: CARDIOVASCULAR DISORDER
     Dosage: 0.5 TABLET AT A TIME
     Route: 048
  4. XANAX [Concomitant]
     Active Substance: ALPRAZOLAM
     Indication: ANXIOLYTIC THERAPY
     Route: 048
     Dates: start: 20150413
  5. DUODOPA [Suspect]
     Active Substance: CARBIDOPA\LEVODOPA
     Indication: PARKINSON^S DISEASE
     Dosage: MD: 11.5ML; CD: 5 ML/H; ED: 1ML
     Route: 050
     Dates: start: 201110, end: 20150504
  6. ADEXOR [Concomitant]
     Indication: CARDIOVASCULAR DISORDER
     Route: 048
  7. WARFARIN ORION [Concomitant]
     Indication: ANTICOAGULANT THERAPY
     Route: 048
     Dates: start: 20150211

REACTIONS (5)
  - Fall [Unknown]
  - Loss of consciousness [Unknown]
  - Haemorrhage intracranial [Fatal]
  - Head injury [Unknown]
  - Atrial fibrillation [Unknown]

NARRATIVE: CASE EVENT DATE: 20150504
